FAERS Safety Report 22682968 (Version 2)
Quarter: 2023Q4

REPORT INFORMATION
  Report Type: Spontaneous
  Country: LT (occurrence: LT)
  Receive Date: 20230707
  Receipt Date: 20231213
  Transmission Date: 20240109
  Serious: Yes (Other)
  Sender: FDA-Public Use
  Company Number: LT-BAYER-2023A090448

PATIENT

DRUGS (5)
  1. NEXAVAR [Suspect]
     Active Substance: SORAFENIB
     Indication: Hepatocellular carcinoma
     Dosage: UNK
     Dates: start: 20210728
  2. NEXAVAR [Suspect]
     Active Substance: SORAFENIB
     Indication: Hepatocellular carcinoma
     Dosage: DAILY DOSE 400 MG
  3. STIVARGA [Suspect]
     Active Substance: REGORAFENIB
     Indication: Hepatocellular carcinoma
     Dosage: 160 MG/D FOR 3 WEEKS
     Dates: start: 20220617
  4. STIVARGA [Suspect]
     Active Substance: REGORAFENIB
     Indication: Hepatocellular carcinoma
     Dosage: 80 MG/D
  5. CABOZANTINIB [Suspect]
     Active Substance: CABOZANTINIB
     Indication: Hepatocellular carcinoma
     Dosage: 60 MG/D
     Dates: start: 20211117

REACTIONS (13)
  - Hepatocellular carcinoma [None]
  - Blood pressure increased [None]
  - Alpha 1 foetoprotein increased [None]
  - Alpha 1 foetoprotein increased [None]
  - Tubulointerstitial nephritis [None]
  - Squamous cell carcinoma of skin [None]
  - Vertigo [None]
  - Abdominal pain upper [None]
  - Visual impairment [None]
  - Asthenia [None]
  - Blister [None]
  - Skin fissures [None]
  - Dry skin [None]

NARRATIVE: CASE EVENT DATE: 20230701
